FAERS Safety Report 13008303 (Version 1)
Quarter: 2016Q4

REPORT INFORMATION
  Report Type: Spontaneous
  Country: TW (occurrence: TW)
  Receive Date: 20161208
  Receipt Date: 20161208
  Transmission Date: 20170207
  Serious: Yes (Death, Hospitalization)
  Sender: FDA-Public Use
  Company Number: TW-BAUSCH-BL-2015-020759

PATIENT
  Age: 36 Year
  Sex: Female

DRUGS (8)
  1. PROPRANOLOL [Suspect]
     Active Substance: PROPRANOLOL\PROPRANOLOL HYDROCHLORIDE
     Indication: PRODUCT USED FOR UNKNOWN INDICATION
     Dosage: PRESCRIBED AMOUNT 3X10 MG/DAY
     Route: 048
  2. ESTAZOLAM. [Suspect]
     Active Substance: ESTAZOLAM
     Indication: PRODUCT USED FOR UNKNOWN INDICATION
     Dosage: PRESCRIBED AMOUNT 2 MG/DAY AT BEDTIME
     Route: 048
  3. FLUOXETINE [Suspect]
     Active Substance: FLUOXETINE HYDROCHLORIDE
     Indication: PRODUCT USED FOR UNKNOWN INDICATION
     Dosage: PRESCRIBED AMOUNT 20MG/DAY
     Route: 048
  4. BROMAZEPAM [Suspect]
     Active Substance: BROMAZEPAM
     Indication: PRODUCT USED FOR UNKNOWN INDICATION
     Dosage: PRESCRIBED AMOUNT 6 MG/DAY AT BEDTIME
     Route: 048
  5. MOCLOBEMIDE [Suspect]
     Active Substance: MOCLOBEMIDE
     Indication: PRODUCT USED FOR UNKNOWN INDICATION
     Dosage: PRESCRIBED AMOUNT 3X 150 MG/DAY
     Route: 048
  6. LORAZEPAM. [Suspect]
     Active Substance: LORAZEPAM
     Indication: PRODUCT USED FOR UNKNOWN INDICATION
     Dosage: PRESCRIBED AMOUNT 1 MG/DAY AT BEDTIME
     Route: 048
  7. ALPRAZOLAM. [Suspect]
     Active Substance: ALPRAZOLAM
     Indication: PRODUCT USED FOR UNKNOWN INDICATION
     Dosage: PRESCRIBED AMOUNT 3X 0.5 MG/DAY
     Route: 048
  8. MIDAZOLAM [Suspect]
     Active Substance: MIDAZOLAM\MIDAZOLAM HYDROCHLORIDE
     Indication: PRODUCT USED FOR UNKNOWN INDICATION
     Dosage: PRESCRIBED AMOUNT 7.5 MG/DAY AT BEDTIME
     Route: 048

REACTIONS (27)
  - Ecchymosis [Unknown]
  - Mydriasis [Unknown]
  - Disseminated intravascular coagulation [Fatal]
  - Ventricular arrhythmia [Unknown]
  - Rhabdomyolysis [Unknown]
  - Completed suicide [Unknown]
  - Tremor [Unknown]
  - Hypertonia [Unknown]
  - Circulatory collapse [Fatal]
  - Coma [Unknown]
  - Bradycardia [Unknown]
  - Muscle twitching [Unknown]
  - Hyperreflexia [Unknown]
  - Thrombocytopenia [Unknown]
  - Chills [Unknown]
  - Intentional overdose [Unknown]
  - Neonatal hypoxia [Unknown]
  - Hyperthermia [Unknown]
  - Serotonin syndrome [Unknown]
  - Respiratory failure [Unknown]
  - Mouth haemorrhage [Unknown]
  - Renal failure [Unknown]
  - Hyperhidrosis [Unknown]
  - Seizure [Unknown]
  - Leukocytosis [Unknown]
  - Hypotension [Unknown]
  - Sinus tachycardia [Unknown]
